FAERS Safety Report 15249708 (Version 1)
Quarter: 2018Q3

REPORT INFORMATION
  Report Type: Spontaneous
  Country: US (occurrence: US)
  Receive Date: 20180807
  Receipt Date: 20180807
  Transmission Date: 20181010
  Serious: Yes (Hospitalization, Other)
  Sender: FDA-Public Use
  Company Number: US-SA-2018SA205964

PATIENT
  Age: 71 Year
  Sex: Male
  Weight: 87 kg

DRUGS (19)
  1. COLESTIPOL [Concomitant]
     Active Substance: COLESTIPOL
     Indication: DIARRHOEA
     Dosage: UNK
  2. FLECAINIDE [Concomitant]
     Active Substance: FLECAINIDE
     Indication: ATRIAL FIBRILLATION
     Dosage: UNK
  3. DEXAMETHASONE. [Concomitant]
     Active Substance: DEXAMETHASONE
     Indication: STEROID THERAPY
     Dosage: UNK
     Dates: start: 20171018, end: 20171211
  4. GEMCITABINE HYDROCHLORIDE. [Suspect]
     Active Substance: GEMCITABINE HYDROCHLORIDE
     Indication: ANGIOSARCOMA METASTATIC
     Dosage: UNK UNK, UNK
     Route: 042
     Dates: start: 20180118
  5. ZOLPIDEM [Concomitant]
     Active Substance: ZOLPIDEM\ZOLPIDEM TARTRATE
     Indication: INSOMNIA
     Dosage: UNK
     Dates: start: 20171102
  6. METOPROLOL SUCCINATE. [Concomitant]
     Active Substance: METOPROLOL SUCCINATE
     Indication: ATRIAL FIBRILLATION
     Dosage: UNK
  7. TAXOTERE [Suspect]
     Active Substance: DOCETAXEL
     Dosage: 75 MG/M2
     Route: 042
     Dates: start: 20171019, end: 20171019
  8. SULFAMETHOXAZOLE [Suspect]
     Active Substance: SULFAMETHOXAZOLE
     Indication: PNEUMONIA
     Dosage: UNK
     Route: 065
     Dates: start: 20171215
  9. TRIMETHOPRIM. [Suspect]
     Active Substance: TRIMETHOPRIM
     Indication: PNEUMONIA
     Dosage: UNK
     Route: 065
     Dates: start: 20171215
  10. ATORVASTATIN [Concomitant]
     Active Substance: ATORVASTATIN
     Indication: BLOOD CHOLESTEROL
     Dosage: UNK
  11. LEVOFLOXACIN. [Concomitant]
     Active Substance: LEVOFLOXACIN
     Indication: URINARY TRACT INFECTION
     Dosage: UNK
     Dates: start: 20171210, end: 20171211
  12. MAGNESIUM OXIDE. [Concomitant]
     Active Substance: MAGNESIUM OXIDE
     Indication: SUPPLEMENTATION THERAPY
     Dosage: UNK
     Dates: start: 20171121
  13. TAXOTERE [Suspect]
     Active Substance: DOCETAXEL
     Dosage: UNK UNK, UNK
     Route: 042
     Dates: start: 20180125, end: 20180125
  14. TAXOTERE [Suspect]
     Active Substance: DOCETAXEL
     Indication: ANGIOSARCOMA METASTATIC
     Dosage: UNK
     Route: 042
     Dates: start: 20171130, end: 20171130
  15. CLONAZEPAM. [Concomitant]
     Active Substance: CLONAZEPAM
     Indication: ANXIETY
     Dosage: UNK
     Dates: start: 20171121
  16. TAXOTERE [Suspect]
     Active Substance: DOCETAXEL
     Indication: SOFT TISSUE SARCOMA
     Dosage: UNK
     Route: 042
     Dates: start: 20171012, end: 20171012
  17. GEMCITABINE HYDROCHLORIDE. [Suspect]
     Active Substance: GEMCITABINE HYDROCHLORIDE
     Indication: SOFT TISSUE SARCOMA
     Dosage: 900 MG/M2
     Route: 042
     Dates: start: 20171012
  18. CARDIZEM [DILTIAZEM] [Concomitant]
     Indication: ATRIAL FIBRILLATION
     Dosage: UNK
     Dates: start: 20170301
  19. LOMOTIL [ATROPINE SULFATE;DIPHENOXYLATE HYDROCHLORIDE] [Concomitant]
     Indication: DIARRHOEA
     Dosage: UNK
     Dates: start: 20171115, end: 20171211

REACTIONS (8)
  - Diarrhoea [Recovered/Resolved]
  - Atrial flutter [Unknown]
  - Hypoxia [Recovered/Resolved]
  - Respiratory distress [Unknown]
  - Micturition urgency [Unknown]
  - Dyspnoea [Recovered/Resolved]
  - Lung infection [Recovered/Resolved]
  - Pyrexia [Recovered/Resolved]

NARRATIVE: CASE EVENT DATE: 20171209
